FAERS Safety Report 19813440 (Version 1)
Quarter: 2021Q3

REPORT INFORMATION
  Report Type: Spontaneous
  Country: US (occurrence: US)
  Receive Date: 20210907
  Receipt Date: 20210907
  Transmission Date: 20211014
  Serious: No
  Sender: FDA-Public Use
  Company Number: None

PATIENT
  Sex: Male

DRUGS (1)
  1. OTEZLA [Suspect]
     Active Substance: APREMILAST
     Indication: PSORIASIS
     Route: 048
     Dates: start: 20190705

REACTIONS (6)
  - Burning sensation [None]
  - Pruritus [None]
  - Arthralgia [None]
  - Therapy non-responder [None]
  - Nausea [None]
  - Vomiting [None]
